FAERS Safety Report 8757854 (Version 1)
Quarter: 2012Q4

REPORT INFORMATION
  Report Type: 
  Country: ES (occurrence: ES)
  Receive Date: 20120828
  Receipt Date: 20120828
  Transmission Date: 20130627
  Serious: Yes (Other)
  Sender: FDA-Public Use
  Company Number: ES-ARROW-2012-14858

PATIENT
  Age: 70 Year
  Sex: Female

DRUGS (1)
  1. PRAMIPEXOLE DIHYDROCHLORIDE (UNKNOWN) [Suspect]
     Indication: PARKINSONISM
     Dosage: UNK
     Route: 065

REACTIONS (1)
  - Pleurothotonus [Recovered/Resolved]
